FAERS Safety Report 11723122 (Version 1)
Quarter: 2015Q4

REPORT INFORMATION
  Report Type: Spontaneous
  Country: TW (occurrence: TW)
  Receive Date: 20151111
  Receipt Date: 20151111
  Transmission Date: 20160304
  Serious: Yes (Other)
  Sender: FDA-Public Use
  Company Number: TW-PFIZER INC-2015369641

PATIENT
  Age: 63 Year
  Sex: Female

DRUGS (5)
  1. XALKORI [Suspect]
     Active Substance: CRIZOTINIB
     Dosage: 1 DF, EVERY OTHER DAY
     Dates: start: 20140703, end: 20141031
  2. XALKORI [Suspect]
     Active Substance: CRIZOTINIB
     Dosage: 1 DF, QD
     Dates: start: 20141031, end: 20150308
  3. XALKORI [Suspect]
     Active Substance: CRIZOTINIB
     Indication: LUNG ADENOCARCINOMA
     Dosage: 1 DF, QD
     Dates: start: 20140517, end: 20140703
  4. XALKORI [Suspect]
     Active Substance: CRIZOTINIB
     Dosage: 1 DF, BID
     Dates: start: 20150308
  5. XALKORI [Suspect]
     Active Substance: CRIZOTINIB
     Dosage: 1 DF, BID
     Dates: start: 20150803

REACTIONS (4)
  - Photophobia [Recovered/Resolved]
  - Diarrhoea [Unknown]
  - Renal impairment [Unknown]
  - Oedema peripheral [Unknown]

NARRATIVE: CASE EVENT DATE: 2015
